FAERS Safety Report 6627008-X (Version None)
Quarter: 2010Q1

REPORT INFORMATION
  Report Type: 
  Country: None (occurrence: None)
  Receive Date: 20100311
  Receipt Date: 20100225
  Transmission Date: 20100710
  Serious: Yes (Hospitalization)
  Sender: FDA-Public Use
  Company Number: GB-ALEXION-A200900471

PATIENT

DRUGS (1)
  1. SOLIRIS [Suspect]
     Indication: FAMILIAL RISK FACTOR
     Dosage: IN-UTERO
     Route: 015

REACTIONS (2)
  - DRUG EXPOSURE DURING PREGNANCY [None]
  - MECONIUM PLUG SYNDROME [None]
